FAERS Safety Report 11677410 (Version 1)
Quarter: 2015Q4

REPORT INFORMATION
  Report Type: Spontaneous
  Country: DE (occurrence: DE)
  Receive Date: 20151028
  Receipt Date: 20151028
  Transmission Date: 20160304
  Serious: Yes (Death)
  Sender: FDA-Public Use
  Company Number: DE-TEVA-603615GER

PATIENT
  Age: 82 Year
  Sex: Male
  Weight: 109.8 kg

DRUGS (1)
  1. FLUTAMID [Suspect]
     Active Substance: FLUTAMIDE
     Indication: PROSTATE CANCER
     Route: 048
     Dates: start: 20150720

REACTIONS (6)
  - Jaundice [Fatal]
  - Acute hepatic failure [Fatal]
  - Transaminases increased [Fatal]
  - Toxicity to various agents [None]
  - Hepatitis cholestatic [Fatal]
  - Acute kidney injury [Fatal]

NARRATIVE: CASE EVENT DATE: 20150909
